FAERS Safety Report 9159837 (Version 1)
Quarter: 2013Q1

REPORT INFORMATION
  Report Type: Spontaneous
  Country: NL (occurrence: None)
  Receive Date: 20130214
  Receipt Date: 20130214
  Transmission Date: 20140127
  Serious: Yes (Hospitalization, Other)
  Sender: FDA-Public Use
  Company Number: VAL_01398_2013

PATIENT
  Age: 58 Year
  Sex: Male

DRUGS (1)
  1. METOPROLOL (METOPROLOL-METOPROLOL TARTRATE) [Suspect]
     Indication: CARDIAC FAILURE
     Dosage: 150 MG QD, (REINSTITUTED AGAIN IN A LOW DOSE)

REACTIONS (5)
  - Cardiac failure [None]
  - Renal impairment [None]
  - Dilatation ventricular [None]
  - Systolic dysfunction [None]
  - Drug ineffective [None]
